FAERS Safety Report 12651124 (Version 1)
Quarter: 2016Q3

REPORT INFORMATION
  Report Type: Spontaneous
  Country: US (occurrence: US)
  Receive Date: 20160815
  Receipt Date: 20160815
  Transmission Date: 20161109
  Serious: No
  Sender: FDA-Public Use
  Company Number: US-JAZZ-2016-US-005077

PATIENT
  Sex: Male

DRUGS (18)
  1. XYREM [Suspect]
     Active Substance: SODIUM OXYBATE
     Indication: NARCOLEPSY
     Dosage: 2.25 G, BID
     Route: 048
     Dates: start: 201210, end: 201211
  2. XYZAL [Concomitant]
     Active Substance: LEVOCETIRIZINE DIHYDROCHLORIDE
  3. LORAZEPAM. [Concomitant]
     Active Substance: LORAZEPAM
  4. PREDNISONE. [Concomitant]
     Active Substance: PREDNISONE
  5. FENTANYL. [Concomitant]
     Active Substance: FENTANYL
  6. NUCYNTA [Suspect]
     Active Substance: TAPENTADOL HYDROCHLORIDE
     Indication: PRODUCT USED FOR UNKNOWN INDICATION
     Dosage: UNK
     Dates: start: 20150901, end: 20151023
  7. BUSPIRONE HCL [Concomitant]
     Active Substance: BUSPIRONE HYDROCHLORIDE
  8. SINGULAIR [Concomitant]
     Active Substance: MONTELUKAST SODIUM
  9. OMNARIS [Concomitant]
     Active Substance: CICLESONIDE
  10. GRALISE [Concomitant]
     Active Substance: GABAPENTIN
  11. MARINOL [Concomitant]
     Active Substance: DRONABINOL
  12. OPANA [Concomitant]
     Active Substance: OXYMORPHONE HYDROCHLORIDE
  13. OPANA [Concomitant]
     Active Substance: OXYMORPHONE HYDROCHLORIDE
  14. LINZESS [Concomitant]
     Active Substance: LINACLOTIDE
  15. PROVIGIL [Concomitant]
     Active Substance: MODAFINIL
  16. OPANA [Concomitant]
     Active Substance: OXYMORPHONE HYDROCHLORIDE
  17. XYREM [Suspect]
     Active Substance: SODIUM OXYBATE
     Dosage: DOSE ADJUSTMENTS
     Route: 048
  18. XYREM [Suspect]
     Active Substance: SODIUM OXYBATE
     Dosage: 3 G, BID
     Route: 048
     Dates: start: 201302

REACTIONS (6)
  - Somnambulism [Unknown]
  - Sinus disorder [Unknown]
  - Pre-existing condition improved [Unknown]
  - Injury [Unknown]
  - Condition aggravated [Unknown]
  - Therapeutic response unexpected [Unknown]

NARRATIVE: CASE EVENT DATE: 2014
